FAERS Safety Report 14482586 (Version 2)
Quarter: 2018Q4

REPORT INFORMATION
  Report Type: Spontaneous
  Country: PT (occurrence: PT)
  Receive Date: 20180203
  Receipt Date: 20181208
  Transmission Date: 20190204
  Serious: Yes (Death, Hospitalization, Other)
  Sender: FDA-Public Use
  Company Number: PT-ROCHE-2064843

PATIENT
  Age: 56 Year
  Sex: Male

DRUGS (5)
  1. EVEROLIMUS. [Suspect]
     Active Substance: EVEROLIMUS
     Indication: RENAL TRANSPLANT
     Dosage: REDUCTION OF IMMUNOSUPRESSIVE AGENTS
     Route: 065
  2. MYCOPHENOLATE MOFETIL. [Suspect]
     Active Substance: MYCOPHENOLATE MOFETIL
     Indication: RENAL TRANSPLANT
     Dosage: REDUCTION OF IMMUNOSUPRESSIVE AGENTS
     Route: 065
  3. PREDNISONE. [Concomitant]
     Active Substance: PREDNISONE
     Indication: RENAL TRANSPLANT
     Route: 065
  4. TACROLIMUS. [Suspect]
     Active Substance: TACROLIMUS
     Indication: RENAL TRANSPLANT
     Dosage: REDUCTION OF IMMUNOSUPRESSIVE AGENTS
     Route: 065
  5. BASILIXIMAB [Concomitant]
     Active Substance: BASILIXIMAB
     Route: 065

REACTIONS (5)
  - Kidney fibrosis [Unknown]
  - Multiple organ dysfunction syndrome [Fatal]
  - Renal tubular atrophy [Unknown]
  - Toxicity to various agents [Recovered/Resolved]
  - Kaposi^s sarcoma [Unknown]
